FAERS Safety Report 17176926 (Version 1)
Quarter: 2019Q4

REPORT INFORMATION
  Report Type: Spontaneous
  Country: KR (occurrence: KR)
  Receive Date: 20191219
  Receipt Date: 20191219
  Transmission Date: 20200122
  Serious: No
  Sender: FDA-Public Use
  Company Number: KR-009507513-1912KOR005968

PATIENT
  Sex: Male

DRUGS (1)
  1. NASONEX [Suspect]
     Active Substance: MOMETASONE FUROATE

REACTIONS (1)
  - Incorrect route of product administration [Unknown]
